FAERS Safety Report 10248608 (Version 1)
Quarter: 2014Q2

REPORT INFORMATION
  Report Type: Spontaneous
  Country: NL (occurrence: NL)
  Receive Date: 20140620
  Receipt Date: 20140620
  Transmission Date: 20141212
  Serious: Yes (Hospitalization, Other)
  Sender: FDA-Public Use
  Company Number: PHHY2014NL074392

PATIENT
  Sex: Male

DRUGS (3)
  1. ZOMETA [Suspect]
     Indication: OSTEOPOROSIS
     Dosage: 0.04MG/ML FLACON 100ML, 1 TIMES PER 11DF
     Dates: start: 20140219
  2. CALCIUM CARBONATE [Concomitant]
     Dosage: 500 MG, QD
  3. COLECALCIFEROL [Concomitant]
     Dosage: 800 IU, QD

REACTIONS (11)
  - Nasopharyngitis [Recovered/Resolved]
  - Chills [Recovered/Resolved]
  - Pyrexia [Recovered/Resolved]
  - Dyspnoea [Recovered/Resolved]
  - Chronic obstructive pulmonary disease [Unknown]
  - Dementia [Unknown]
  - Wheezing [Unknown]
  - Breath sounds abnormal [Unknown]
  - Crepitations [Unknown]
  - Influenza like illness [Unknown]
  - Confusional state [Unknown]
